FAERS Safety Report 4691500-8 (Version None)
Quarter: 2005Q2

REPORT INFORMATION
  Report Type: 
  Country: None (occurrence: None)
  Receive Date: 20050608
  Receipt Date: 20040715
  Transmission Date: 20051028
  Serious: Yes (Other)
  Sender: FDA-Public Use
  Company Number: 374630

PATIENT

DRUGS (1)
  1. ACCUTANE [Suspect]

REACTIONS (1)
  - ABORTION SPONTANEOUS [None]
